FAERS Safety Report 24417176 (Version 1)
Quarter: 2024Q4

REPORT INFORMATION
  Report Type: Spontaneous
  Country: IL (occurrence: IL)
  Receive Date: 20241009
  Receipt Date: 20241009
  Transmission Date: 20250114
  Serious: Yes (Hospitalization, Other)
  Sender: GLAND PHARMA
  Company Number: IL-GLANDPHARMA-IL-2024GLNLIT00816

PATIENT
  Age: 77 Year
  Sex: Female

DRUGS (5)
  1. ADENOSINE [Suspect]
     Active Substance: ADENOSINE
     Indication: Tachycardia
     Route: 042
  2. METOPROLOL TARTRATE [Suspect]
     Active Substance: METOPROLOL TARTRATE
     Indication: Tachycardia
     Route: 042
  3. VERAPAMIL HYDROCHLORIDE [Suspect]
     Active Substance: VERAPAMIL HYDROCHLORIDE
     Indication: Tachycardia
     Route: 065
  4. ELIQUIS [Concomitant]
     Active Substance: APIXABAN
     Indication: Atrial fibrillation
     Route: 065
  5. TAMBOCOR [Concomitant]
     Active Substance: FLECAINIDE ACETATE
     Indication: Atrial fibrillation
     Route: 065

REACTIONS (5)
  - Sinus node dysfunction [Recovered/Resolved]
  - Atrioventricular block [Recovered/Resolved]
  - Cardiac arrest [Recovering/Resolving]
  - Drug interaction [Unknown]
  - Product use in unapproved indication [Unknown]
